FAERS Safety Report 16706785 (Version 2)
Quarter: 2020Q3

REPORT INFORMATION
  Report Type: Spontaneous
  Country: US (occurrence: US)
  Receive Date: 20190815
  Receipt Date: 20200817
  Transmission Date: 20201102
  Serious: No
  Sender: FDA-Public Use
  Company Number: US-CHIESI USA, INC.-US-2019CHI000154

PATIENT

DRUGS (1)
  1. KENGREAL [Suspect]
     Active Substance: CANGRELOR
     Indication: OFF LABEL USE
     Dosage: 0.75 ?G/KG/MIN, QD
     Route: 042
     Dates: start: 20190320, end: 20190322

REACTIONS (4)
  - Infusion site swelling [Recovered/Resolved]
  - Pain [Recovered/Resolved]
  - Infusion site extravasation [Recovered/Resolved]
  - Off label use [Recovered/Resolved]

NARRATIVE: CASE EVENT DATE: 20190320
